FAERS Safety Report 18519261 (Version 11)
Quarter: 2022Q1

REPORT INFORMATION
  Report Type: Spontaneous
  Country: US (occurrence: US)
  Receive Date: 20201118
  Receipt Date: 20220214
  Transmission Date: 20220424
  Serious: No
  Sender: FDA-Public Use
  Company Number: US-BIOMARINAP-US-2020-132706

PATIENT
  Age: 14 Year
  Sex: Male

DRUGS (5)
  1. ALDURAZYME [Suspect]
     Active Substance: LARONIDASE
     Indication: Mucopolysaccharidosis I
     Dosage: 23.2 MILLIGRAM, QW
     Route: 041
     Dates: start: 20150603
  2. ALDURAZYME [Suspect]
     Active Substance: LARONIDASE
     Dosage: 23.2 MILLIGRAM, QW
     Route: 041
     Dates: start: 20210215, end: 2021
  3. ALDURAZYME [Suspect]
     Active Substance: LARONIDASE
     Dosage: 29 MILLIGRAM, QW
     Route: 041
     Dates: start: 20210526, end: 2021
  4. ALDURAZYME [Suspect]
     Active Substance: LARONIDASE
     Dosage: 23.2 MILLIGRAM, QW
     Route: 041
     Dates: start: 20210709, end: 2021
  5. ALDURAZYME [Suspect]
     Active Substance: LARONIDASE
     Dosage: 23.2 MILLIGRAM, QW
     Route: 041
     Dates: start: 20210731

REACTIONS (7)
  - Poor venous access [Recovered/Resolved]
  - Catheter site pain [Unknown]
  - Device issue [Recovered/Resolved]
  - Device breakage [Recovered/Resolved]
  - Burns second degree [Unknown]
  - Pain [Unknown]
  - Limb operation [Recovered/Resolved]

NARRATIVE: CASE EVENT DATE: 20200101
